FAERS Safety Report 5293192-6 (Version None)
Quarter: 2007Q2

REPORT INFORMATION
  Report Type: 
  Country: None (occurrence: None)
  Receive Date: 20070405
  Receipt Date: 20070320
  Transmission Date: 20071010
  Serious: Yes (Life-Threatening, Hospitalization, Other)
  Sender: FDA-Public Use
  Company Number: DSA_29647_2007

PATIENT
  Age: 76 Year
  Sex: Male

DRUGS (7)
  1. ENALAPRIL [Suspect]
     Dosage: DF,
  2. SPIRONOLACTONE [Suspect]
     Dosage: DF;
  3. TORSEMIDE [Suspect]
     Dosage: DF;
  4. BETA BLOCKER [Concomitant]
  5. AMIODARONE HCL [Concomitant]
  6. DIGOXIN [Concomitant]
  7. WARFARIN SODIUM [Concomitant]

REACTIONS (6)
  - DEHYDRATION [None]
  - ELECTROCARDIOGRAM ABNORMAL [None]
  - HEART RATE DECREASED [None]
  - HYPERKALAEMIA [None]
  - RENAL FAILURE [None]
  - SYNCOPE [None]
